FAERS Safety Report 14523443 (Version 1)
Quarter: 2018Q1

REPORT INFORMATION
  Report Type: Report from Study
  Country: None (occurrence: DE)
  Receive Date: 20180212
  Receipt Date: 20180212
  Transmission Date: 20180509
  Serious: Yes (Hospitalization)
  Sender: FDA-Public Use
  Company Number: DE-ABBVIE-18K-062-2253785-00

PATIENT
  Age: 79 Year
  Sex: Male

DRUGS (1)
  1. DUODOPA [Suspect]
     Active Substance: CARBIDOPA\LEVODOPA
     Indication: PARKINSON^S DISEASE
     Dosage: MD: 8,0ML  CRD: 4,5ML/H ED: 1,0ML
     Route: 050
     Dates: start: 20170818

REACTIONS (1)
  - Dental operation [Not Recovered/Not Resolved]

NARRATIVE: CASE EVENT DATE: 20180108
